FAERS Safety Report 7480658-3 (Version None)
Quarter: 2011Q2

REPORT INFORMATION
  Report Type: 
  Country: None (occurrence: None)
  Receive Date: 20110506
  Receipt Date: 20110421
  Transmission Date: 20111010
  Serious: Yes (Hospitalization, Other)
  Sender: FDA-Public Use
  Company Number: 1000020593

PATIENT
  Age: 76 Year
  Sex: Female

DRUGS (1)
  1. ROFLUMILAST (ROFLUMILAST) [Suspect]
     Dates: end: 20110421

REACTIONS (4)
  - DYSPNOEA [None]
  - DECREASED APPETITE [None]
  - GENERAL PHYSICAL HEALTH DETERIORATION [None]
  - DIARRHOEA [None]
